FAERS Safety Report 24289646 (Version 1)
Quarter: 2024Q3

REPORT INFORMATION
  Report Type: Spontaneous
  Country: US (occurrence: None)
  Receive Date: 20240906
  Receipt Date: 20240906
  Transmission Date: 20241016
  Serious: Yes (Other)
  Sender: ASTRAZENECA
  Company Number: 2024A198462

PATIENT
  Age: 55 Year
  Sex: Female

DRUGS (1)
  1. NEXIUM [Suspect]
     Active Substance: ESOMEPRAZOLE MAGNESIUM
     Route: 048

REACTIONS (8)
  - Throat cancer [Unknown]
  - Gastric cancer [Unknown]
  - Gastric polyps [Unknown]
  - Cardiac disorder [Unknown]
  - Neoplasm [Unknown]
  - Nausea [Unknown]
  - Dizziness [Unknown]
  - Loss of consciousness [Unknown]
